FAERS Safety Report 10540124 (Version 2)
Quarter: 2015Q1

REPORT INFORMATION
  Report Type: Spontaneous
  Country: IT (occurrence: None)
  Receive Date: 20141022
  Receipt Date: 20150130
  Transmission Date: 20150720
  Serious: Yes (Hospitalization, Other)
  Sender: FDA-Public Use
  Company Number: KAD201410-001282

PATIENT
  Age: 63 Year
  Sex: Male

DRUGS (5)
  1. PIPERACILLIN + TAZOBACTAM (PIPERACILLIN, TAZOBACTAM) (PIPERACILLIN, TAQZOBACTAM) [Concomitant]
  2. TACROLIMUS. [Suspect]
     Active Substance: TACROLIMUS
     Indication: IMMUNOSUPPRESSION
  3. CIPROFLOXACIN (CIPROFLOXACIN) (CIPROFLOXACIN) [Concomitant]
     Active Substance: CIPROFLOXACIN
  4. RIBAVIRIN. [Suspect]
     Active Substance: RIBAVIRIN
     Indication: CHRONIC HEPATITIS C
     Dates: start: 200507
  5. PEGASYS [Suspect]
     Active Substance: PEGINTERFERON ALFA-2A
     Indication: CHRONIC HEPATITIS C
     Dosage: 180 MCG ONCE IN A WEEK
     Dates: start: 200507

REACTIONS (4)
  - Obliterative bronchiolitis [None]
  - Aspartate aminotransferase increased [None]
  - Bone marrow failure [None]
  - Haemolysis [None]
